FAERS Safety Report 19051937 (Version 2)
Quarter: 2021Q3

REPORT INFORMATION
  Report Type: Spontaneous
  Country: EG (occurrence: EG)
  Receive Date: 20210324
  Receipt Date: 20210705
  Transmission Date: 20211014
  Serious: Yes (Life-Threatening, Other)
  Sender: FDA-Public Use
  Company Number: EG-NOVOPROD-796323

PATIENT
  Age: 790 Month
  Sex: Female

DRUGS (4)
  1. CONCOR [Concomitant]
     Active Substance: BISOPROLOL FUMARATE
     Indication: HYPERTENSION
     Dosage: 1 TABLET PM
     Route: 048
  2. CO?TAREG [Concomitant]
     Active Substance: HYDROCHLOROTHIAZIDE\VALSARTAN
     Indication: HYPERTENSION
     Dosage: 1 TABLET AM, 12.5
     Route: 048
  3. LIVERIN [ANETHOLE TRITHIONE] [Concomitant]
     Indication: HEPATITIS
     Dosage: 1 TABLET PER DAY, SHE STARTED USING LIVERIN 2 YEARS AGO AND SHE STOPPED USING IT 1 YEAR AGO
     Route: 048
  4. NOVOMIX 30 FLEXPEN [Suspect]
     Active Substance: INSULIN ASPART
     Indication: DIABETES MELLITUS
     Dosage: UNK(STARTED FROM MORE THAN 10 YEARS)
     Route: 058
     Dates: end: 20210305

REACTIONS (1)
  - Viral infection [Recovered/Resolved]
